FAERS Safety Report 5009694-3 (Version None)
Quarter: 2006Q2

REPORT INFORMATION
  Report Type: 
  Country: None (occurrence: None)
  Receive Date: 20060524
  Receipt Date: 20060516
  Transmission Date: 20061013
  Serious: Yes (Other)
  Sender: FDA-Public Use
  Company Number: US-MERCK-0605USA03274

PATIENT
  Age: 81 Year
  Sex: Female

DRUGS (9)
  1. FOSAMAX [Suspect]
     Indication: OSTEOPOROSIS
     Route: 048
     Dates: start: 19950101
  2. FOSAMAX [Suspect]
     Route: 048
     Dates: end: 20060501
  3. ZANTAC [Concomitant]
     Route: 065
  4. NORVASC [Concomitant]
     Route: 065
  5. [THERAPY UNSPECIFIED] [Concomitant]
     Route: 065
  6. PLAVIX [Concomitant]
     Route: 065
  7. PRINIVIL [Concomitant]
     Route: 065
  8. COREG [Concomitant]
     Route: 065
  9. VYTORIN [Concomitant]
     Route: 065

REACTIONS (4)
  - MUSCULAR WEAKNESS [None]
  - MYOCARDIAL INFARCTION [None]
  - PAIN IN EXTREMITY [None]
  - THROAT IRRITATION [None]
